FAERS Safety Report 5091599-3 (Version None)
Quarter: 2006Q3

REPORT INFORMATION
  Report Type: 
  Country: None (occurrence: None)
  Receive Date: 20060727
  Receipt Date: 20060411
  Transmission Date: 20061208
  Serious: Yes (Other)
  Sender: FDA-Public Use
  Company Number: 2006050774

PATIENT
  Age: 34 Year
  Sex: Male
  Weight: 102.0593 kg

DRUGS (2)
  1. LYRICA [Suspect]
     Indication: NEURALGIA
     Dosage: 150 MG (50 MG,3 IN 1 D)
     Dates: start: 20050101
  2. INSULIN (INSULIN) [Concomitant]

REACTIONS (2)
  - DRUG INEFFECTIVE [None]
  - NEURALGIA [None]
